FAERS Safety Report 7672165-X (Version None)
Quarter: 2011Q3

REPORT INFORMATION
  Report Type: 
  Country: None (occurrence: None)
  Receive Date: 20110809
  Receipt Date: 20110728
  Transmission Date: 20111222
  Serious: Yes (Other)
  Sender: FDA-Public Use
  Company Number: PHHY2011JP65806

PATIENT
  Age: 3 Year
  Sex: Male

DRUGS (6)
  1. TACROLIMUS [Concomitant]
     Indication: LIVER TRANSPLANT
  2. PIMOZIDE [Concomitant]
     Dosage: 0.08 MG/KG PER DAY
     Route: 048
  3. CHLORPROMAZINE HYDROCHLORIDE [Concomitant]
     Route: 030
  4. CYCLOSPORINE [Suspect]
     Indication: LIVER TRANSPLANT
     Dosage: UNK
  5. MIDAZOLAM HCL [Concomitant]
  6. BIPERIDEN LACTATE [Concomitant]
     Dosage: 2 MG,
     Route: 030

REACTIONS (5)
  - AKINESIA [None]
  - PARKINSONISM [None]
  - TREMOR [None]
  - MUSCLE RIGIDITY [None]
  - MASKED FACIES [None]
